FAERS Safety Report 15737478 (Version 3)
Quarter: 2019Q2

REPORT INFORMATION
  Report Type: Report from Study
  Country: US (occurrence: US)
  Receive Date: 20181218
  Receipt Date: 20190508
  Transmission Date: 20190711
  Serious: Yes (Hospitalization, Other)
  Sender: FDA-Public Use
  Company Number: US-BRISTOL-MYERS SQUIBB COMPANY-BMS-2018-117269

PATIENT
  Age: 84 Year
  Sex: Female

DRUGS (1)
  1. APIXABAN [Suspect]
     Active Substance: APIXABAN
     Indication: CEREBROVASCULAR ACCIDENT PROPHYLAXIS
     Dosage: 2.5 MILLIGRAM, QD
     Route: 048
     Dates: start: 2016

REACTIONS (7)
  - Wrong technique in product usage process [Unknown]
  - Myocardial infarction [Unknown]
  - Multiple fractures [Unknown]
  - Inappropriate schedule of product administration [Unknown]
  - Accident [Unknown]
  - Cardiac failure [Unknown]
  - Concussion [Unknown]

NARRATIVE: CASE EVENT DATE: 20180301
